FAERS Safety Report 7130417-6 (Version None)
Quarter: 2010Q4

REPORT INFORMATION
  Report Type: 
  Country: None (occurrence: None)
  Receive Date: 20101201
  Receipt Date: 20101122
  Transmission Date: 20110411
  Serious: Yes (Other)
  Sender: FDA-Public Use
  Company Number: CA-JNJFOC-20101108591

PATIENT
  Sex: Female
  Weight: 99 kg

DRUGS (6)
  1. REMICADE [Suspect]
     Indication: CROHN'S DISEASE
     Route: 042
  2. PENTASA [Concomitant]
     Route: 048
  3. IMURAN [Concomitant]
     Route: 048
  4. FOLIC ACID [Concomitant]
     Route: 048
  5. AMITRIPTYLINE [Concomitant]
     Route: 048
  6. CITALOPRAM [Concomitant]
     Route: 048

REACTIONS (2)
  - BLOOD GLUCOSE DECREASED [None]
  - LOSS OF CONSCIOUSNESS [None]
